FAERS Safety Report 24083026 (Version 2)
Quarter: 2024Q4

REPORT INFORMATION
  Report Type: Spontaneous
  Country: US (occurrence: US)
  Receive Date: 20240712
  Receipt Date: 20241004
  Transmission Date: 20250114
  Serious: Yes (Life-Threatening, Hospitalization)
  Sender: LUPIN
  Company Number: US-LUPIN PHARMACEUTICALS INC.-2024-06243

PATIENT
  Age: 29 Day

DRUGS (12)
  1. LORAZEPAM [Suspect]
     Active Substance: LORAZEPAM
     Indication: Status epilepticus
     Dosage: 0.1 MILLIGRAM/KILOGRAM
     Route: 065
  2. FOSPHENYTOIN SODIUM [Suspect]
     Active Substance: FOSPHENYTOIN SODIUM
     Indication: Status epilepticus
     Dosage: 20 MILLIGRAM/KILOGRAM (20 PES/KG)
     Route: 065
  3. PHENOBARBITAL [Suspect]
     Active Substance: PHENOBARBITAL
     Indication: Status epilepticus
     Dosage: 10 MILLIGRAM/KILOGRAM, SINGLE
     Route: 065
  4. PHENOBARBITAL [Suspect]
     Active Substance: PHENOBARBITAL
     Dosage: 10 MILLIGRAM/KILOGRAM (3 ADDITIONAL 10-MG/KG DOSES)
     Route: 065
  5. PHENOBARBITAL [Suspect]
     Active Substance: PHENOBARBITAL
     Dosage: 10 MILLIGRAM/KILOGRAM, BID
     Route: 042
  6. MIDAZOLAM [Suspect]
     Active Substance: MIDAZOLAM
     Indication: Status epilepticus
     Dosage: 0.9 MILLIGRAM/KILOGRAM PER HOUR (CONTINUOUS INFUSION WAS INITIATED ON HOSPITAL DAY 1 AT 0.1 MG/ KG/H
     Route: 065
  7. PENTOBARBITAL [Suspect]
     Active Substance: PENTOBARBITAL
     Indication: Status epilepticus
     Dosage: 1 MILLIGRAM/KILOGRAM, INFUSION
     Route: 065
  8. PENTOBARBITAL [Suspect]
     Active Substance: PENTOBARBITAL
     Dosage: TITRATED BY 0.5 MG/KG/HR TO A RATE OF 2 MG/KG/HR
     Route: 065
  9. PENTOBARBITAL [Suspect]
     Active Substance: PENTOBARBITAL
     Dosage: 10 MILLIGRAM/KILOGRAM, ON HOSPITAL DAYS?4 THROUGH 7 INFUSION
     Route: 065
  10. KETAMINE [Suspect]
     Active Substance: KETAMINE
     Indication: Status epilepticus
     Dosage: 4.5 MILLIGRAM/KILOGRAM PER HOUR (FOLLOWING 2 KETAMINE BOLUSES (1 MG/KG/DOSE IV), EACH ADMINISTERED O
     Route: 042
  11. LEVETIRACETAM [Suspect]
     Active Substance: LEVETIRACETAM
     Indication: Status epilepticus
     Dosage: 30 MILLIGRAM/KILOGRAM, BID
     Route: 042
  12. DEXTROSE [Concomitant]
     Active Substance: DEXTROSE MONOHYDRATE
     Indication: Hypoglycaemia
     Dosage: UNK, 25 %
     Route: 065

REACTIONS (2)
  - Therapy non-responder [Unknown]
  - Off label use [Unknown]
